FAERS Safety Report 5681952-9 (Version None)
Quarter: 2008Q1

REPORT INFORMATION
  Report Type: 
  Country: None (occurrence: None)
  Receive Date: 20080327
  Receipt Date: 20070504
  Transmission Date: 20080703
  Serious: Yes (Other)
  Sender: FDA-Public Use
  Company Number: US-BAYER-US-2007-011430

PATIENT
  Age: 35 Year
  Sex: Female
  Weight: 100 kg

DRUGS (6)
  1. MIRENA [Suspect]
     Indication: CONTRACEPTION
     Route: 015
     Dates: start: 20061005
  2. CELEBREX [Concomitant]
     Dosage: UNIT DOSE: 200 MG
  3. NEXIUM [Concomitant]
  4. VICODIN [Concomitant]
  5. BENADRYL ^WARNER-LAMBERT^ /USA/ [Concomitant]
  6. ALEVE /01515801/ [Concomitant]

REACTIONS (9)
  - ALOPECIA [None]
  - GENITAL HAEMORRHAGE [None]
  - JOINT SWELLING [None]
  - LIBIDO DECREASED [None]
  - PANIC ATTACK [None]
  - PREMENSTRUAL SYNDROME [None]
  - PROCEDURAL PAIN [None]
  - SCIATICA [None]
  - WEIGHT INCREASED [None]
